FAERS Safety Report 9830846 (Version 2)
Quarter: 2014Q3

REPORT INFORMATION
  Report Type: Spontaneous
  Country: US (occurrence: US)
  Receive Date: 20140120
  Receipt Date: 20140825
  Transmission Date: 20150326
  Serious: Yes (Hospitalization, Other)
  Sender: FDA-Public Use
  Company Number: US-009507513-1401USA007019

PATIENT
  Sex: Female
  Weight: 73.47 kg

DRUGS (1)
  1. NUVARING [Suspect]
     Active Substance: ETHINYL ESTRADIOL\ETONOGESTREL
     Indication: CONTRACEPTION
     Dosage: 0.12 MG-0.015 MG/24 HR, ONE RING X3 WEEKS
     Route: 067

REACTIONS (5)
  - Deep vein thrombosis [Unknown]
  - Deep vein thrombosis [Unknown]
  - Peripheral venous disease [Not Recovered/Not Resolved]
  - Pulmonary embolism [Recovering/Resolving]
  - Deep vein thrombosis [Unknown]

NARRATIVE: CASE EVENT DATE: 20120922
